FAERS Safety Report 12171462 (Version 1)
Quarter: 2016Q1

REPORT INFORMATION
  Report Type: Spontaneous
  Country: US (occurrence: US)
  Receive Date: 20160311
  Receipt Date: 20160311
  Transmission Date: 20160526
  Serious: No
  Sender: FDA-Public Use
  Company Number: US-PFIZER INC-2016090020

PATIENT
  Age: 13 Year
  Sex: Female
  Weight: 41 kg

DRUGS (2)
  1. LAMICTAL [Suspect]
     Active Substance: LAMOTRIGINE
     Indication: PETIT MAL EPILEPSY
     Dosage: 150 MG, 1X/DAY
  2. CELONTIN [Suspect]
     Active Substance: METHSUXIMIDE
     Dosage: UNK
     Dates: start: 20160115, end: 20160117

REACTIONS (4)
  - Abdominal pain upper [Unknown]
  - Vomiting [Recovered/Resolved]
  - Flatulence [Recovering/Resolving]
  - Dizziness [Recovering/Resolving]

NARRATIVE: CASE EVENT DATE: 20160118
